FAERS Safety Report 9475459 (Version 1)
Quarter: 2013Q3

REPORT INFORMATION
  Report Type: Spontaneous
  Country: US (occurrence: None)
  Receive Date: 20130822
  Receipt Date: 20130822
  Transmission Date: 20140515
  Serious: Yes (Hospitalization)
  Sender: FDA-Public Use
  Company Number: None

PATIENT
  Age: 41 Year
  Sex: Female
  Weight: 117.7 kg

DRUGS (2)
  1. SERTRALINE [Suspect]
     Indication: DEPRESSION
     Route: 048
     Dates: start: 20130425, end: 20130428
  2. TRAZODONE [Suspect]
     Indication: SOMNOLENCE
     Dosage: AT BEDTIME
     Route: 048
     Dates: start: 20121220

REACTIONS (7)
  - Unresponsive to stimuli [None]
  - Nausea [None]
  - Lethargy [None]
  - Headache [None]
  - Confusional state [None]
  - Dizziness [None]
  - Hypotension [None]
